FAERS Safety Report 6571247-3 (Version None)
Quarter: 2010Q1

REPORT INFORMATION
  Report Type: 
  Country: None (occurrence: None)
  Receive Date: 20100129
  Receipt Date: 20100119
  Transmission Date: 20100710
  Serious: Yes (Other)
  Sender: FDA-Public Use
  Company Number: A-CH2009-30596

PATIENT
  Age: 1 Year
  Sex: Female

DRUGS (3)
  1. ZAVESCA [Suspect]
     Indication: NIEMANN-PICK DISEASE
     Dosage: 100 MG, ORAL
     Route: 048
     Dates: start: 20090401
  2. PRIORIX(MEASLES, MUMPS AND RUBELLA VACCINE) [Suspect]
     Dates: start: 20091001
  3. VAXIGRIP (INFLUENZA VACCINE INACTIVATED) [Concomitant]

REACTIONS (3)
  - DRUG INTERACTION [None]
  - PURPURA [None]
  - VACCINATION COMPLICATION [None]
